FAERS Safety Report 24321245 (Version 1)
Quarter: 2024Q3

REPORT INFORMATION
  Report Type: Report from Study
  Country: US (occurrence: None)
  Receive Date: 20240916
  Receipt Date: 20240916
  Transmission Date: 20241016
  Serious: Yes (Hospitalization)
  Sender: ASTRAZENECA
  Company Number: 2024A205940

PATIENT
  Sex: Male

DRUGS (1)
  1. CALQUENCE [Suspect]
     Active Substance: ACALABRUTINIB
     Indication: Lymphocytosis
     Route: 048
     Dates: start: 20220318

REACTIONS (3)
  - Haematological infection [Unknown]
  - Diarrhoea [Unknown]
  - Product distribution issue [Unknown]
